FAERS Safety Report 23139663 (Version 1)
Quarter: 2023Q4

REPORT INFORMATION
  Report Type: Report from Study
  Country: CN (occurrence: CN)
  Receive Date: 20231102
  Receipt Date: 20231102
  Transmission Date: 20240110
  Serious: Yes (Life-Threatening, Hospitalization)
  Sender: FDA-Public Use
  Company Number: CN-Eisai-EC-2023-151827

PATIENT
  Age: 63 Year
  Sex: Male

DRUGS (5)
  1. LENVATINIB [Suspect]
     Active Substance: LENVATINIB
     Indication: Hepatocellular carcinoma
     Route: 048
     Dates: start: 20230510
  2. LENVATINIB [Suspect]
     Active Substance: LENVATINIB
     Route: 048
     Dates: start: 20230805
  3. LENVATINIB [Suspect]
     Active Substance: LENVATINIB
     Route: 048
     Dates: start: 20230823, end: 20230925
  4. TORIPALIMAB [Suspect]
     Active Substance: TORIPALIMAB
     Indication: Hepatocellular carcinoma
     Dosage: 240 MG/PLACEBO
     Route: 042
     Dates: start: 20230510, end: 20230620
  5. COMPOUND SILYMARIN [Concomitant]
     Indication: Antiviral prophylaxis
     Route: 048
     Dates: start: 20230701

REACTIONS (1)
  - Acute kidney injury [Recovered/Resolved]

NARRATIVE: CASE EVENT DATE: 20230725
